FAERS Safety Report 4763656-X (Version None)
Quarter: 2005Q3

REPORT INFORMATION
  Report Type: 
  Country: None (occurrence: None)
  Receive Date: 20050901
  Receipt Date: 20050426
  Transmission Date: 20060218
  Serious: No
  Sender: FDA-Public Use
  Company Number: 05P-163-0298422-00

PATIENT
  Age: 77 Year
  Sex: Female
  Weight: 61.6892 kg

DRUGS (3)
  1. ULTIVA [Suspect]
     Indication: PAIN
     Dosage: INTRAVENOUS
     Route: 042
     Dates: start: 20050426, end: 20050426
  2. DESFLURANE [Concomitant]
  3. LEXAPRO [Concomitant]

REACTIONS (2)
  - BLOOD PRESSURE INCREASED [None]
  - DRUG INEFFECTIVE [None]
